FAERS Safety Report 6629633-9 (Version None)
Quarter: 2010Q1

REPORT INFORMATION
  Report Type: 
  Country: None (occurrence: None)
  Receive Date: 20100311
  Receipt Date: 20100302
  Transmission Date: 20100710
  Serious: Yes (Other)
  Sender: FDA-Public Use
  Company Number: FR-PFIZER INC-2010026640

PATIENT
  Age: 48 Year
  Sex: Male

DRUGS (5)
  1. TAHOR [Suspect]
     Indication: MYOCARDIAL INFARCTION
     Dosage: 10 MG, UNK
     Dates: start: 20100112, end: 20100302
  2. SIMVASTATIN [Suspect]
     Indication: MYOCARDIAL INFARCTION
     Dosage: UNK
     Dates: start: 19980101, end: 20100111
  3. ZESTRIL [Concomitant]
     Dosage: UNK
  4. KARDEGIC [Concomitant]
     Dosage: UNK
  5. ATENOLOL [Concomitant]
     Dosage: UNK

REACTIONS (1)
  - MYALGIA [None]
